FAERS Safety Report 16979652 (Version 1)
Quarter: 2019Q4

REPORT INFORMATION
  Report Type: Spontaneous
  Country: TH (occurrence: TH)
  Receive Date: 20191031
  Receipt Date: 20191031
  Transmission Date: 20200122
  Serious: Yes (Other)
  Sender: FDA-Public Use
  Company Number: TH-SA-2019SA302126

PATIENT
  Age: 51 Year
  Sex: Male

DRUGS (1)
  1. HARNAL [Suspect]
     Active Substance: TAMSULOSIN HYDROCHLORIDE
     Indication: PRODUCT USED FOR UNKNOWN INDICATION
     Dosage: 0.4 MG, QD
     Route: 048
     Dates: start: 20180723, end: 20180723

REACTIONS (1)
  - Choking [Not Recovered/Not Resolved]

NARRATIVE: CASE EVENT DATE: 20180724
